FAERS Safety Report 8131117 (Version 24)
Quarter: 2022Q1

REPORT INFORMATION
  Report Type: Spontaneous
  Country: GB (occurrence: GB)
  Receive Date: 20110912
  Receipt Date: 20220107
  Transmission Date: 20220424
  Serious: Yes (Life-Threatening, Hospitalization, Disabling)
  Sender: FDA-Public Use
  Company Number: GB-ROCHE-800954

PATIENT
  Age: 27 Year
  Sex: Female
  Weight: 63.5 kg

DRUGS (58)
  1. CODEINE [Suspect]
     Active Substance: CODEINE
     Indication: Analgesic therapy
     Dosage: DOSAGE FORM : UNSPECIFIED, 15-30 MG
     Route: 048
     Dates: start: 20110615, end: 20110723
  2. CODEINE [Suspect]
     Active Substance: CODEINE
     Indication: Serotonin syndrome
     Route: 048
     Dates: start: 2002, end: 2002
  3. CODEINE [Suspect]
     Active Substance: CODEINE
     Route: 048
     Dates: start: 20110224, end: 20110410
  4. CODEINE [Suspect]
     Active Substance: CODEINE
     Route: 048
     Dates: start: 2008, end: 2008
  5. MIRTAZAPINE [Suspect]
     Active Substance: MIRTAZAPINE
     Indication: Depression
     Dosage: DRUG WITHDRAWN
     Route: 048
     Dates: start: 20101007, end: 20101012
  6. MIRTAZAPINE [Suspect]
     Active Substance: MIRTAZAPINE
     Route: 048
     Dates: start: 20100923, end: 20101108
  7. MIRTAZAPINE [Suspect]
     Active Substance: MIRTAZAPINE
     Dosage: 30MG IN THE DAY AND 15MG AT NIGHT)
     Route: 065
     Dates: start: 20110224, end: 20110506
  8. MIRTAZAPINE [Suspect]
     Active Substance: MIRTAZAPINE
     Dosage: 30MG IN THE DAY AND 15MG AT NIGHT)
     Route: 065
  9. MIRTAZAPINE [Suspect]
     Active Substance: MIRTAZAPINE
     Dosage: 15 MG, QD (30 MG IN THE DAY AND 15 MG AT NIGHT, TABLET)
     Route: 048
     Dates: start: 20101007, end: 20101012
  10. MIRTAZAPINE [Suspect]
     Active Substance: MIRTAZAPINE
     Dosage: 30MG IN THE DAY AND 15MG AT NIGHT)
     Route: 065
     Dates: start: 20110224, end: 20110506
  11. PROCYCLIDINE [Suspect]
     Active Substance: PROCYCLIDINE
     Indication: Extrapyramidal disorder
     Dosage: IN 1ST TRIMESTER
     Route: 065
     Dates: start: 20110415
  12. PROCYCLIDINE [Suspect]
     Active Substance: PROCYCLIDINE
     Indication: Oculogyric crisis
     Route: 048
     Dates: start: 20110324, end: 20110506
  13. PROCYCLIDINE [Suspect]
     Active Substance: PROCYCLIDINE
     Route: 048
     Dates: start: 20110503, end: 20110510
  14. PROCYCLIDINE [Suspect]
     Active Substance: PROCYCLIDINE
     Route: 048
     Dates: start: 1995, end: 1996
  15. DIAZEPAM [Suspect]
     Active Substance: DIAZEPAM
     Indication: Muscle spasms
     Dosage: 20 MG, QD 5 MILLIGRAM, QID (5 MG QDS AND NOW ON 2-2-4 MG)
     Route: 048
     Dates: start: 20110725
  16. DIAZEPAM [Suspect]
     Active Substance: DIAZEPAM
     Indication: Serotonin syndrome
     Route: 048
  17. DIAZEPAM [Suspect]
     Active Substance: DIAZEPAM
     Indication: Schizophrenia
     Route: 065
     Dates: start: 20110725
  18. DIAZEPAM [Suspect]
     Active Substance: DIAZEPAM
     Route: 065
  19. TRAMADOL HYDROCHLORIDE [Suspect]
     Active Substance: TRAMADOL HYDROCHLORIDE
     Indication: Back pain
     Route: 065
  20. TRAMADOL HYDROCHLORIDE [Suspect]
     Active Substance: TRAMADOL HYDROCHLORIDE
     Indication: Analgesic therapy
     Route: 044
     Dates: start: 1995, end: 1995
  21. TRAMADOL HYDROCHLORIDE [Suspect]
     Active Substance: TRAMADOL HYDROCHLORIDE
     Indication: Neck pain
     Route: 044
     Dates: start: 1995, end: 1996
  22. TRAMADOL HYDROCHLORIDE [Suspect]
     Active Substance: TRAMADOL HYDROCHLORIDE
     Dosage: 4 CYCLICAL, QD (50-100 MG QD)
     Route: 048
     Dates: start: 20081201, end: 20101210
  23. PAROXETINE HYDROCHLORIDE [Suspect]
     Active Substance: PAROXETINE HYDROCHLORIDE
     Indication: Depression
     Dosage: INTERRUPTED
     Route: 048
     Dates: start: 1997
  24. PAROXETINE HYDROCHLORIDE [Suspect]
     Active Substance: PAROXETINE HYDROCHLORIDE
     Route: 048
     Dates: start: 201012
  25. PAROXETINE HYDROCHLORIDE [Suspect]
     Active Substance: PAROXETINE HYDROCHLORIDE
     Dosage: DRUG WITHDRAWN 20 MG, TID (60 MG, QD)
     Route: 048
     Dates: start: 19990801, end: 201105
  26. PAROXETINE HYDROCHLORIDE [Suspect]
     Active Substance: PAROXETINE HYDROCHLORIDE
     Route: 048
     Dates: start: 1999
  27. PAROXETINE HYDROCHLORIDE [Suspect]
     Active Substance: PAROXETINE HYDROCHLORIDE
     Dosage: INTERRUPTED
     Route: 048
     Dates: start: 1997, end: 201105
  28. PAROXETINE HYDROCHLORIDE [Suspect]
     Active Substance: PAROXETINE HYDROCHLORIDE
     Dosage: INTERRUPTED
     Route: 048
     Dates: start: 200812, end: 20101210
  29. PAROXETINE HYDROCHLORIDE [Suspect]
     Active Substance: PAROXETINE HYDROCHLORIDE
     Dosage: INTERRUPTED
     Route: 048
     Dates: start: 201105, end: 20110706
  30. PAROXETINE HYDROCHLORIDE [Suspect]
     Active Substance: PAROXETINE HYDROCHLORIDE
     Route: 048
     Dates: start: 200812, end: 20101210
  31. AMITRIPTYLINE [Suspect]
     Active Substance: AMITRIPTYLINE
     Indication: Muscle spasms
     Dosage: AT NIGHT)
     Route: 065
     Dates: start: 20110810
  32. AMITRIPTYLINE [Suspect]
     Active Substance: AMITRIPTYLINE
     Dosage: (AT NIGHT)
     Route: 065
  33. AMITRIPTYLINE [Suspect]
     Active Substance: AMITRIPTYLINE
     Route: 065
  34. TRAMADOL [Suspect]
     Active Substance: TRAMADOL
     Indication: Neck pain
     Dosage: 2008/2009, DRUG START/DRUG WITHDRAWN
     Route: 048
     Dates: start: 20081201, end: 20101210
  35. TRAMADOL [Suspect]
     Active Substance: TRAMADOL
     Indication: Analgesic therapy
     Dosage: 2008/2009, DRUG START/DRUG WITHDRAWN
     Route: 048
  36. TRAMADOL [Suspect]
     Active Substance: TRAMADOL
     Indication: Back pain
     Dosage: 2008/2009, QD (4 CYCLICAL (50-100MG QDS FOR ONE WEEK ONLY))
     Route: 048
     Dates: start: 20080722
  37. TRAMADOL [Suspect]
     Active Substance: TRAMADOL
     Route: 065
  38. TRAMADOL [Suspect]
     Active Substance: TRAMADOL
     Dosage: 20 MG, QD TABLET (5 MG, 4 TIMES A DAY)
     Route: 065
     Dates: start: 20110725
  39. QUETIAPINE FUMARATE [Suspect]
     Active Substance: QUETIAPINE FUMARATE
     Indication: Psychotic disorder
     Route: 048
     Dates: start: 20110224, end: 20110506
  40. QUETIAPINE FUMARATE [Suspect]
     Active Substance: QUETIAPINE FUMARATE
     Route: 048
     Dates: start: 19990801, end: 20110706
  41. LORAZEPAM [Suspect]
     Active Substance: LORAZEPAM
     Indication: Sedation
     Dosage: DRUG WITHDRAWN
     Route: 048
     Dates: start: 20110224, end: 20110410
  42. LORAZEPAM [Suspect]
     Active Substance: LORAZEPAM
     Dosage: 4 MG, QD (1 MG, QID)
     Route: 048
     Dates: start: 20110523, end: 20110627
  43. LORAZEPAM [Suspect]
     Active Substance: LORAZEPAM
     Route: 048
     Dates: start: 20110725
  44. LORAZEPAM [Suspect]
     Active Substance: LORAZEPAM
     Dosage: DRUG WITHDRAWN
     Route: 048
     Dates: start: 20110224, end: 20110410
  45. DOMPERIDONE [Suspect]
     Active Substance: DOMPERIDONE
     Indication: Product used for unknown indication
     Route: 048
  46. DOMPERIDONE [Suspect]
     Active Substance: DOMPERIDONE
     Route: 065
     Dates: start: 20100923, end: 20101108
  47. DOMPERIDONE [Suspect]
     Active Substance: DOMPERIDONE
     Route: 048
  48. PAROXETINE [Suspect]
     Active Substance: PAROXETINE
     Indication: Depression
     Route: 048
     Dates: start: 19990801, end: 20110706
  49. PAROXETINE [Suspect]
     Active Substance: PAROXETINE
     Indication: Post-traumatic stress disorder
     Dosage: (20 MG THREE TIMES A DAY)
     Route: 048
     Dates: start: 199908, end: 201105
  50. PAROXETINE [Suspect]
     Active Substance: PAROXETINE
     Dosage: (20 MG THREE TIMES A DAY)
     Route: 048
     Dates: start: 201105, end: 20110706
  51. PAROXETINE [Suspect]
     Active Substance: PAROXETINE
     Dosage: (20 MG THREE TIMES A DAY)
     Route: 048
     Dates: start: 1997
  52. PAROXETINE [Suspect]
     Active Substance: PAROXETINE
     Route: 048
     Dates: start: 1996, end: 201105
  53. PAROXETINE [Suspect]
     Active Substance: PAROXETINE
     Dosage: 60 MG, QD (20 MG 3 TIMES PER DAY)
     Route: 048
     Dates: start: 1997, end: 201105
  54. PAROXETINE [Suspect]
     Active Substance: PAROXETINE
     Route: 048
     Dates: start: 19990801, end: 201105
  55. PHOSPHORUS [Suspect]
     Active Substance: PHOSPHORUS
     Indication: Product used for unknown indication
     Route: 065
  56. CLONAZEPAM [Suspect]
     Active Substance: CLONAZEPAM
     Indication: Sedation
     Route: 048
     Dates: start: 20110224, end: 20110410
  57. OMEPRAZOLE [Suspect]
     Active Substance: OMEPRAZOLE
     Indication: Dyspepsia
     Route: 065
     Dates: start: 20110525
  58. OMEPRAZOLE [Suspect]
     Active Substance: OMEPRAZOLE
     Indication: Schizophrenia
     Route: 065

REACTIONS (88)
  - Psychotic disorder [Recovered/Resolved]
  - Decreased appetite [Unknown]
  - Skin discolouration [Not Recovered/Not Resolved]
  - Schizophrenia [Unknown]
  - Swelling face [Unknown]
  - Blood sodium decreased [Unknown]
  - Suicidal ideation [Not Recovered/Not Resolved]
  - Somnolence [Not Recovered/Not Resolved]
  - Disturbance in attention [Unknown]
  - Mydriasis [Unknown]
  - Visual impairment [Unknown]
  - Drug withdrawal syndrome [Unknown]
  - Musculoskeletal stiffness [Unknown]
  - Muscle disorder [Unknown]
  - Off label use [Unknown]
  - Paraesthesia [Unknown]
  - H1N1 influenza [Unknown]
  - Depersonalisation/derealisation disorder [Not Recovered/Not Resolved]
  - Urinary retention [Unknown]
  - Nightmare [Unknown]
  - Mood swings [Unknown]
  - Disorientation [Not Recovered/Not Resolved]
  - Contusion [Unknown]
  - Gastric pH decreased [Unknown]
  - Mania [Unknown]
  - Limb injury [Unknown]
  - Pyrexia [Unknown]
  - Maternal exposure during pregnancy [Unknown]
  - Drug interaction [Unknown]
  - Dizziness [Unknown]
  - Tinnitus [Unknown]
  - Asthenia [Unknown]
  - Dyspnoea [Unknown]
  - Serotonin syndrome [Not Recovered/Not Resolved]
  - Drooling [Unknown]
  - Menstrual disorder [Unknown]
  - Dyskinesia [Unknown]
  - Delirium [Unknown]
  - Diarrhoea [Unknown]
  - Tremor [Not Recovered/Not Resolved]
  - Contusion [Unknown]
  - Vision blurred [Unknown]
  - Parosmia [Unknown]
  - Balance disorder [Unknown]
  - Cogwheel rigidity [Unknown]
  - Feeling of body temperature change [Unknown]
  - Premature labour [Unknown]
  - Incontinence [Not Recovered/Not Resolved]
  - Arthralgia [Unknown]
  - Illness [Unknown]
  - Restless legs syndrome [Not Recovered/Not Resolved]
  - Muscle spasms [Not Recovered/Not Resolved]
  - Hypoaesthesia [Not Recovered/Not Resolved]
  - Drug ineffective [Unknown]
  - Anxiety [Unknown]
  - Speech disorder [Unknown]
  - Hypoaesthesia oral [Unknown]
  - Swollen tongue [Unknown]
  - Seizure [Unknown]
  - Fatigue [Unknown]
  - Sleep disorder [Unknown]
  - Hallucinations, mixed [Unknown]
  - Derealisation [Not Recovered/Not Resolved]
  - Confusional state [Not Recovered/Not Resolved]
  - Dystonia [Unknown]
  - Agitation [Unknown]
  - Sensory loss [Unknown]
  - Headache [Unknown]
  - Dissociation [Not Recovered/Not Resolved]
  - Vomiting [Unknown]
  - Neuroleptic malignant syndrome [Unknown]
  - Emotional disorder [Unknown]
  - Pruritus [Unknown]
  - Hyperhidrosis [Unknown]
  - Gait disturbance [Unknown]
  - Muscle rigidity [Unknown]
  - Restlessness [Unknown]
  - Tachycardia [Unknown]
  - Aphasia [Not Recovered/Not Resolved]
  - Feeling jittery [Unknown]
  - Paralysis [Unknown]
  - Eye pain [Unknown]
  - Depression [Unknown]
  - Toxicity to various agents [Unknown]
  - Feeling of despair [Unknown]
  - Therapeutic product ineffective [Unknown]
  - Pallor [Unknown]
  - Heart rate increased [Unknown]

NARRATIVE: CASE EVENT DATE: 20030101
